FAERS Safety Report 5087842-7 (Version None)
Quarter: 2006Q3

REPORT INFORMATION
  Report Type: 
  Country: None (occurrence: None)
  Receive Date: 20060821
  Receipt Date: 20060821
  Transmission Date: 20061208
  Serious: Yes (Hospitalization)
  Sender: FDA-Public Use
  Company Number: None

PATIENT
  Sex: Male
  Weight: 14.9 kg

DRUGS (11)
  1. METHOTREXATE [Suspect]
     Dosage: 10 MG
  2. PEG-L-ASPARAGINASE (K-H) [Suspect]
     Dosage: 1500 MG
  3. VINCRISTINE SULFATE [Suspect]
     Dosage: SEE IMAGE
     Dates: start: 20060512
  4. VINCRISTINE SULFATE [Suspect]
     Dosage: SEE IMAGE
     Dates: start: 20060519
  5. VINCRISTINE SULFATE [Suspect]
     Dosage: SEE IMAGE
     Dates: start: 20060526
  6. VINCRISTINE SULFATE [Suspect]
     Dosage: SEE IMAGE
     Dates: start: 20060602
  7. DAUNORUBICIN HCL [Suspect]
     Dosage: SEE IMAGE
     Dates: start: 20060512
  8. DAUNORUBICIN HCL [Suspect]
     Dosage: SEE IMAGE
     Dates: start: 20060519
  9. DAUNORUBICIN HCL [Suspect]
     Dosage: SEE IMAGE
     Dates: start: 20060526
  10. DAUNORUBICIN HCL [Suspect]
     Dosage: SEE IMAGE
     Dates: start: 20060602
  11. DEXAMETHASONE TAB [Suspect]
     Dosage: 84 MG   3 MG BID
     Dates: start: 20060512, end: 20060525

REACTIONS (22)
  - ACUTE RESPIRATORY DISTRESS SYNDROME [None]
  - BACILLUS INFECTION [None]
  - BILIRUBIN CONJUGATED INCREASED [None]
  - CEREBRAL HAEMORRHAGE [None]
  - DISEASE PROGRESSION [None]
  - DRUG TOXICITY [None]
  - DYSSTASIA [None]
  - ENCEPHALOPATHY [None]
  - GLIOMA [None]
  - HEPATOSPLENOMEGALY [None]
  - HYPERCALCAEMIA [None]
  - HYPOKALAEMIA [None]
  - HYPOXIA [None]
  - ISCHAEMIA [None]
  - LEUKOENCEPHALOMYELITIS [None]
  - MENTAL STATUS CHANGES [None]
  - NERVOUS SYSTEM DISORDER [None]
  - ORAL INTAKE REDUCED [None]
  - PNEUMOTHORAX [None]
  - PYREXIA [None]
  - THERAPY NON-RESPONDER [None]
  - WHITE BLOOD CELL COUNT INCREASED [None]
